FAERS Safety Report 21413558 (Version 1)
Quarter: 2022Q4

REPORT INFORMATION
  Report Type: Spontaneous
  Country: CA (occurrence: CA)
  Receive Date: 20221006
  Receipt Date: 20221006
  Transmission Date: 20230113
  Serious: Yes (Life-Threatening, Hospitalization)
  Sender: FDA-Public Use
  Company Number: CA-TEVA-2022-CA-2078563

PATIENT
  Age: 60 Year
  Sex: Female

DRUGS (4)
  1. CAPTOPRIL [Suspect]
     Active Substance: CAPTOPRIL
     Indication: Cerebrovascular accident
  2. ACETAMINOPHEN [Concomitant]
     Active Substance: ACETAMINOPHEN
     Indication: Product used for unknown indication
  3. HYDRALAZINE [Concomitant]
     Active Substance: HYDRALAZINE HYDROCHLORIDE
     Indication: Product used for unknown indication
  4. LABETALOL [Concomitant]
     Active Substance: LABETALOL\LABETALOL HYDROCHLORIDE
     Indication: Product used for unknown indication

REACTIONS (3)
  - Angioedema [Recovered/Resolved]
  - Dyspnoea [Recovered/Resolved]
  - Stridor [Recovered/Resolved]
